FAERS Safety Report 18053275 (Version 3)
Quarter: 2021Q3

REPORT INFORMATION
  Report Type: Report from Study
  Country: JP (occurrence: JP)
  Receive Date: 20200722
  Receipt Date: 20210812
  Transmission Date: 20211014
  Serious: Yes (Death, Life-Threatening, Other)
  Sender: FDA-Public Use
  Company Number: JP-ASTELLAS-2019JP029655

PATIENT
  Age: 48 Year
  Sex: Female
  Weight: 38 kg

DRUGS (34)
  1. ASP2215 [Suspect]
     Active Substance: GILTERITINIB
     Route: 048
     Dates: start: 20200605, end: 20200709
  2. ASP2215 [Suspect]
     Active Substance: GILTERITINIB
     Route: 048
     Dates: start: 20201118, end: 20201120
  3. CYTARABINE. [Concomitant]
     Active Substance: CYTARABINE
     Dosage: 250 MG/DAY, UNKNOWN FREQ.
     Route: 042
     Dates: start: 20191119, end: 20191123
  4. VFEND [Concomitant]
     Active Substance: VORICONAZOLE
     Indication: PRODUCT USED FOR UNKNOWN INDICATION
     Dosage: 600 MG/DAY, UNKNOWN FREQ.
     Route: 048
     Dates: start: 20201207, end: 20201214
  5. ASP2215 [Suspect]
     Active Substance: GILTERITINIB
     Route: 048
     Dates: start: 20191213, end: 20191219
  6. ASP2215 [Suspect]
     Active Substance: GILTERITINIB
     Route: 048
     Dates: start: 20200325, end: 20200327
  7. ASP2215 [Suspect]
     Active Substance: GILTERITINIB
     Route: 048
     Dates: start: 20200328, end: 20200406
  8. ASP2215 [Suspect]
     Active Substance: GILTERITINIB
     Route: 048
     Dates: start: 20200710, end: 20200712
  9. ASP2215 [Suspect]
     Active Substance: GILTERITINIB
     Route: 048
     Dates: start: 20200815, end: 20200827
  10. ASP2215 [Suspect]
     Active Substance: GILTERITINIB
     Route: 048
     Dates: start: 20201031, end: 20201117
  11. PREDONINE [Concomitant]
     Active Substance: PREDNISOLONE
     Indication: PROPHYLAXIS
     Dosage: 5 MG/DAY, UNKNOWN FREQ.
     Route: 048
  12. ARBEKACIN [Concomitant]
     Active Substance: ARBEKACIN
     Indication: PRODUCT USED FOR UNKNOWN INDICATION
     Dosage: 150 G/DAY, UNKNOWN FREQ.
     Route: 041
     Dates: start: 20201214, end: 20201218
  13. MEROPENEM. [Concomitant]
     Active Substance: MEROPENEM
     Indication: PRODUCT USED FOR UNKNOWN INDICATION
     Dosage: 1000 MG/DAY, UNKNOWN FREQ.
     Route: 041
     Dates: start: 20201216, end: 20210103
  14. ZYVOX [Concomitant]
     Active Substance: LINEZOLID
     Indication: PRODUCT USED FOR UNKNOWN INDICATION
     Dosage: 1200 MG/DAY, UNKNOWN FREQ.
     Route: 041
     Dates: start: 20201219, end: 20210103
  15. ASP2215 [Suspect]
     Active Substance: GILTERITINIB
     Route: 048
     Dates: start: 20191106, end: 20191117
  16. BIOFERMIN [Concomitant]
     Active Substance: DIETARY SUPPLEMENT\PROBIOTICS
     Indication: PROPHYLAXIS
     Dosage: 36 MG/DAY, UNKNOWN FREQ.
     Route: 048
  17. MICAFUNGIN NA [Concomitant]
     Active Substance: MICAFUNGIN SODIUM
     Indication: PRODUCT USED FOR UNKNOWN INDICATION
     Dosage: 150 MG/DAY, UNKNOWN FREQ.
     Route: 041
     Dates: start: 20201215, end: 20201215
  18. ASP2215 [Suspect]
     Active Substance: GILTERITINIB
     Route: 048
     Dates: start: 20200801, end: 20200807
  19. ASP2215 [Suspect]
     Active Substance: GILTERITINIB
     Route: 048
     Dates: start: 20200808, end: 20200814
  20. ASP2215 [Suspect]
     Active Substance: GILTERITINIB
     Route: 048
     Dates: start: 20200828, end: 20201007
  21. ASP2215 [Suspect]
     Active Substance: GILTERITINIB
     Route: 048
     Dates: start: 20201008, end: 20201030
  22. CYTARABINE. [Concomitant]
     Active Substance: CYTARABINE
     Indication: ACUTE MYELOID LEUKAEMIA
     Dosage: 250 MG/DAY, UNKNOWN FREQ.
     Route: 042
     Dates: start: 20191009, end: 20191014
  23. ASP2215 [Suspect]
     Active Substance: GILTERITINIB
     Indication: ACUTE MYELOID LEUKAEMIA REFRACTORY
     Route: 048
     Dates: start: 20190912, end: 20191008
  24. ASP2215 [Suspect]
     Active Substance: GILTERITINIB
     Route: 048
     Dates: start: 20201121, end: 20201211
  25. ASP2215 [Suspect]
     Active Substance: GILTERITINIB
     Route: 048
     Dates: start: 20210104, end: 20210107
  26. TAKECAB [Concomitant]
     Active Substance: VONOPRAZAN FUMARATE
     Indication: PROPHYLAXIS
     Dosage: 20 MG/DAY, UNKNOWN FREQ.
     Route: 048
  27. TEICOPLANIN [Concomitant]
     Active Substance: TEICOPLANIN
     Indication: PRODUCT USED FOR UNKNOWN INDICATION
     Dosage: 200 MG/DAY, UNKNOWN FREQ.
     Route: 041
     Dates: start: 20201207, end: 20201213
  28. ASP2215 [Suspect]
     Active Substance: GILTERITINIB
     Route: 048
     Dates: start: 20200529, end: 20200604
  29. DAUNOMYCIN [Concomitant]
     Active Substance: DAUNORUBICIN
     Indication: ACUTE MYELOID LEUKAEMIA
     Dosage: 60 MG/DAY, UNKNOWN FREQ.
     Route: 042
     Dates: start: 20191119, end: 20191121
  30. ASP2215 [Suspect]
     Active Substance: GILTERITINIB
     Route: 048
     Dates: start: 20191220, end: 20191227
  31. ASP2215 [Suspect]
     Active Substance: GILTERITINIB
     Route: 048
     Dates: start: 20210108, end: 20210115
  32. ASP2215 [Suspect]
     Active Substance: GILTERITINIB
     Route: 048
     Dates: start: 20210116, end: 20210131
  33. GRANISETRON [Concomitant]
     Active Substance: GRANISETRON
     Indication: PROPHYLAXIS
     Dosage: 2 MG/DAY, UNKNOWN FREQ.
     Route: 048
     Dates: start: 20191203, end: 20191208
  34. AMBISOME [Concomitant]
     Active Substance: AMPHOTERICIN B
     Indication: PRODUCT USED FOR UNKNOWN INDICATION
     Dosage: 150 MG/DAY, UNKNOWN FREQ.
     Route: 041
     Dates: start: 20201216, end: 20210104

REACTIONS (3)
  - White blood cell count decreased [Recovered/Resolved]
  - Pneumonia [Recovering/Resolving]
  - Acute myeloid leukaemia [Fatal]

NARRATIVE: CASE EVENT DATE: 20191220
